FAERS Safety Report 5369171-7 (Version None)
Quarter: 2007Q2

REPORT INFORMATION
  Report Type: 
  Country: None (occurrence: None)
  Receive Date: 20070620
  Receipt Date: 20070611
  Transmission Date: 20071010
  Serious: Yes (Hospitalization)
  Sender: FDA-Public Use
  Company Number: 07-001264

PATIENT
  Age: 9 Year
  Sex: Male

DRUGS (2)
  1. DURICEF [Suspect]
     Indication: TONSILLITIS
     Dosage: ORAL
     Route: 048
     Dates: start: 20070502, end: 20070507
  2. SURGAM (TIAPROFENAC ACID) [Suspect]
     Indication: TONSILLITIS
     Dosage: ORAL
     Route: 048
     Dates: start: 20070502, end: 20070507

REACTIONS (4)
  - EYELID OEDEMA [None]
  - FACE OEDEMA [None]
  - LIP SWELLING [None]
  - STOMATITIS [None]
